FAERS Safety Report 8789467 (Version 1)
Quarter: 2012Q4

REPORT INFORMATION
  Report Type: Spontaneous
  Country: None (occurrence: None)
  Receive Date: 20120906
  Receipt Date: 20120906
  Transmission Date: 20130627
  Serious: Yes (Other)
  Sender: FDA-Public Use
  Company Number: AUR-APL-2012-03716

PATIENT
  Age: 24 Year
  Sex: Female
  Weight: 62 kg

DRUGS (6)
  1. CITALOPRAM (CITALOPRAM) [Suspect]
     Indication: DEPRESSION
     Route: 048
     Dates: start: 20120309, end: 20120309
  2. CODEINE (CODEINE) [Concomitant]
  3. LEVONELLE (LEVONORGESTREL) [Concomitant]
  4. NUROFEN (IBUPROFEN) [Concomitant]
  5. PARACETAMOL (PARACETAMOL) [Concomitant]
  6. VALERIAN (VALERIANA OFFICINALIS) [Concomitant]

REACTIONS (16)
  - Anxiety [None]
  - Decreased appetite [None]
  - Mydriasis [None]
  - Panic attack [None]
  - Panic reaction [None]
  - Depression [None]
  - Respiratory rate increased [None]
  - Dizziness [None]
  - Nausea [None]
  - Paraesthesia [None]
  - Tremor [None]
  - Fear [None]
  - Feeling abnormal [None]
  - Stress [None]
  - Thinking abnormal [None]
  - Fear of death [None]
